FAERS Safety Report 7054719-7 (Version None)
Quarter: 2010Q4

REPORT INFORMATION
  Report Type: 
  Country: None (occurrence: None)
  Receive Date: 20101015
  Receipt Date: 20100929
  Transmission Date: 20110411
  Serious: Yes (Disabling)
  Sender: FDA-Public Use
  Company Number: ACO_02568_2010

PATIENT
  Sex: Female
  Weight: 68.0396 kg

DRUGS (8)
  1. AMPYRA [Suspect]
     Indication: GAIT DISTURBANCE
     Dosage: (10 MG BID ORAL)
     Route: 048
     Dates: start: 20100401, end: 20100927
  2. AMPYRA [Suspect]
  3. AMPYRA [Suspect]
  4. PROVIGIL [Concomitant]
  5. BACLOFEN [Concomitant]
  6. OXYBUTYNIN ER AND IR [Concomitant]
  7. REQUIP [Concomitant]
  8. VITAMIN TAB [Concomitant]

REACTIONS (8)
  - ABASIA [None]
  - ACTIVITIES OF DAILY LIVING IMPAIRED [None]
  - BALANCE DISORDER [None]
  - CONDITION AGGRAVATED [None]
  - DYSSTASIA [None]
  - FATIGUE [None]
  - MUSCULAR WEAKNESS [None]
  - VERTIGO [None]
